FAERS Safety Report 4885151-X (Version None)
Quarter: 2005Q4

REPORT INFORMATION
  Report Type: 
  Country: None (occurrence: None)
  Receive Date: 20051201
  Receipt Date: 20050914
  Transmission Date: 20060501
  Serious: No
  Sender: FDA-Public Use
  Company Number: 2005PV002157

PATIENT
  Age: 59 Year
  Sex: Female

DRUGS (9)
  1. BYETTA [Suspect]
     Indication: DIABETES MELLITUS NON-INSULIN-DEPENDENT
     Dosage: 5 MCG; BID; SC
     Route: 058
     Dates: start: 20050914
  2. STARLIX [Concomitant]
  3. METFORMIN [Concomitant]
  4. DYNACIRC [Concomitant]
  5. TOPROL-XL [Concomitant]
  6. DIOVAN HCT [Concomitant]
  7. ASPIRIN [Concomitant]
  8. ACTOS [Concomitant]
  9. ACTIVELLA [Concomitant]

REACTIONS (1)
  - BLOOD GLUCOSE INCREASED [None]
